FAERS Safety Report 5684437-9 (Version None)
Quarter: 2008Q1

REPORT INFORMATION
  Report Type: 
  Country: None (occurrence: None)
  Receive Date: 20080328
  Receipt Date: 20080321
  Transmission Date: 20080703
  Serious: Yes (Disabling)
  Sender: FDA-Public Use
  Company Number: CY-MERCK-0803USA03784

PATIENT
  Age: 50 Year
  Sex: Female

DRUGS (2)
  1. FOSAMAX PLUS D [Concomitant]
     Indication: OSTEOPOROSIS
     Route: 048
     Dates: end: 20080317
  2. FOSAMAX [Suspect]
     Indication: OSTEOPOROSIS
     Route: 048
     Dates: start: 20030101, end: 20070101

REACTIONS (1)
  - PITYRIASIS RUBRA PILARIS [None]
